FAERS Safety Report 18334551 (Version 1)
Quarter: 2020Q3

REPORT INFORMATION
  Report Type: Spontaneous
  Country: US (occurrence: US)
  Receive Date: 20200930
  Receipt Date: 20200930
  Transmission Date: 20201103
  Serious: No
  Sender: FDA-Public Use
  Company Number: None

PATIENT
  Age: 52 Year
  Sex: Female

DRUGS (3)
  1. FULVESTRANT. [Suspect]
     Active Substance: FULVESTRANT
  2. XGEVA [Suspect]
     Active Substance: DENOSUMAB
     Dosage: ?          OTHER FREQUENCY:OTHER;?
     Route: 058
     Dates: start: 202001
  3. XGEVA [Suspect]
     Active Substance: DENOSUMAB

REACTIONS (3)
  - Diarrhoea [None]
  - Disease progression [None]
  - Weight decreased [None]

NARRATIVE: CASE EVENT DATE: 20200918
